FAERS Safety Report 9026746 (Version 1)
Quarter: 2012Q4

REPORT INFORMATION
  Report Type: 
  Country: US (occurrence: None)
  Receive Date: 20121231
  Receipt Date: 20121231
  Transmission Date: 20130627
  Serious: Yes (Hospitalization)
  Sender: FDA-Public Use
  Company Number: AEUSA201200556

PATIENT
  Age: 72 Year
  Sex: Male

DRUGS (13)
  1. GAMUNEX-C [Suspect]
     Route: 042
     Dates: start: 20121112, end: 20121114
  2. CYANOCOBALAMIN [Concomitant]
  3. NITROSTAT [Concomitant]
  4. LISINOPRIL [Concomitant]
  5. CLOPIDOGREL [Concomitant]
  6. ATENOLOL [Concomitant]
  7. ALPRAZOLAM [Concomitant]
  8. SILDENAFIL [Concomitant]
  9. CALCIUM + VITAMIN D /01483701/ [Concomitant]
  10. LOPERAMIDE [Concomitant]
  11. IBUPROFEN [Concomitant]
  12. SIMVASTATIN [Concomitant]
  13. LANSOPRAZOLE [Concomitant]

REACTIONS (1)
  - Pulmonary embolism [None]
